FAERS Safety Report 13370224 (Version 1)
Quarter: 2017Q1

REPORT INFORMATION
  Report Type: Spontaneous
  Country: IN (occurrence: IN)
  Receive Date: 20170324
  Receipt Date: 20170324
  Transmission Date: 20170429
  Serious: Yes (Death)
  Sender: FDA-Public Use
  Company Number: IN-PFIZER INC-2017126172

PATIENT
  Age: 48 Year
  Sex: Female

DRUGS (2)
  1. PALBACE [Suspect]
     Active Substance: PALBOCICLIB
     Indication: BREAST CANCER METASTATIC
     Dosage: 125 MG, 1X/DAY
     Route: 048
  2. FASLODEX [Concomitant]
     Active Substance: FULVESTRANT
     Dosage: UNK

REACTIONS (7)
  - Dyspnoea [Fatal]
  - Cardiac arrest [Fatal]
  - Hepatic encephalopathy [Fatal]
  - Liver disorder [Fatal]
  - Somnolence [Unknown]
  - Jaundice [Fatal]
  - Blood bilirubin increased [Fatal]
